FAERS Safety Report 23943148 (Version 1)
Quarter: 2024Q2

REPORT INFORMATION
  Report Type: Spontaneous
  Country: US (occurrence: None)
  Receive Date: 20240605
  Receipt Date: 20240605
  Transmission Date: 20240716
  Serious: No
  Sender: FDA-Public Use
  Company Number: None

PATIENT
  Age: 70 Year
  Sex: Female

DRUGS (1)
  1. PREDNISONE [Suspect]
     Active Substance: PREDNISONE
     Indication: Antisynthetase syndrome

REACTIONS (4)
  - Cataract [None]
  - Fungal foot infection [None]
  - Gingival recession [None]
  - Therapy cessation [None]

NARRATIVE: CASE EVENT DATE: 20230107
